FAERS Safety Report 16761164 (Version 1)
Quarter: 2019Q3

REPORT INFORMATION
  Report Type: Spontaneous
  Country: US (occurrence: US)
  Receive Date: 20190830
  Receipt Date: 20190830
  Transmission Date: 20191005
  Serious: No
  Sender: FDA-Public Use
  Company Number: US-ANIPHARMA-2019-US-003618

PATIENT
  Sex: Female

DRUGS (2)
  1. ANASTROZOLE. [Suspect]
     Active Substance: ANASTROZOLE
     Indication: PRODUCT USED FOR UNKNOWN INDICATION
     Dosage: UNK
     Route: 065
  2. UNK [Suspect]
     Active Substance: UNSPECIFIED INGREDIENT
     Dosage: 125 MG DAILY / 21 ON, 7 OFF
     Route: 048
     Dates: start: 20180518

REACTIONS (2)
  - Rash [Unknown]
  - Stomatitis [Recovering/Resolving]
